FAERS Safety Report 21556195 (Version 1)
Quarter: 2022Q4

REPORT INFORMATION
  Report Type: Spontaneous
  Country: US (occurrence: US)
  Receive Date: 20221104
  Receipt Date: 20221104
  Transmission Date: 20230112
  Serious: No
  Sender: FDA-Public Use
  Company Number: US-JOURNEY MEDICAL CORPORATION-2022JNY00740

PATIENT
  Sex: Female

DRUGS (1)
  1. AMZEEQ [Suspect]
     Active Substance: MINOCYCLINE HYDROCHLORIDE
     Dosage: ON FACE, 2X/DAY
     Route: 061

REACTIONS (6)
  - Inflammation [Unknown]
  - Exposure to allergen [Unknown]
  - Therapeutic product effect variable [Unknown]
  - Off label use [Unknown]
  - Wrong technique in product usage process [Unknown]
  - Product physical consistency issue [Unknown]
